FAERS Safety Report 9663151 (Version 2)
Quarter: 2014Q1

REPORT INFORMATION
  Report Type: Spontaneous
  Country: US (occurrence: US)
  Receive Date: 20131101
  Receipt Date: 20140101
  Transmission Date: 20141002
  Serious: Yes (Death, Other)
  Sender: FDA-Public Use
  Company Number: US-AMGEN-USASP2013076229

PATIENT
  Age: 89 Year
  Sex: Male

DRUGS (8)
  1. PROLIA [Suspect]
     Indication: PRODUCT USED FOR UNKNOWN INDICATION
     Dosage: UNK
     Route: 065
  2. BENZONATATE [Concomitant]
     Indication: COUGH
     Dosage: 200 MG, EVERY SIX HOURS AS NECESSARY
     Route: 048
     Dates: start: 20120701
  3. MORPHINE SULFATE [Concomitant]
     Indication: ABDOMINAL PAIN UPPER
     Dosage: 100 MG/5 ML (20 MG/ML) 0.25-0.5 ML (5-10 MG), EVERY 3 HOURS PRN
     Route: 048
     Dates: start: 20130626
  4. NITROGLYCERIN [Concomitant]
     Indication: CHEST PAIN
     Dosage: 0.4 MG, EVERY 5 MIN PRN AS NECESSARY
     Route: 060
     Dates: start: 20060101
  5. PEPCID AC [Concomitant]
     Dosage: 20 MG (2 TABLET), BID
     Route: 048
     Dates: start: 20120601
  6. PLAVIX [Concomitant]
     Dosage: 75 MG, QD
     Route: 048
     Dates: start: 20060101
  7. REMERON [Concomitant]
     Dosage: 15 MG (ONE TABLET) FOR ONE WEEK THEN INCREASED TO 30 MG, QD
     Route: 048
     Dates: start: 20130613
  8. TYLENOL                            /00020001/ [Concomitant]
     Indication: PAIN
     Dosage: 325 MG (2 TABLET), 24 HOURS PRN, 3000 MG A DAY
     Route: 048
     Dates: start: 20000101

REACTIONS (22)
  - Death [Fatal]
  - Transient ischaemic attack [Not Recovered/Not Resolved]
  - Arteriosclerosis coronary artery [Not Recovered/Not Resolved]
  - Bedridden [Unknown]
  - Respiratory arrest [Unknown]
  - Asthenia [Not Recovered/Not Resolved]
  - Dysphagia [Not Recovered/Not Resolved]
  - Muscular weakness [Not Recovered/Not Resolved]
  - Gastrooesophageal reflux disease [Not Recovered/Not Resolved]
  - Faecal incontinence [Unknown]
  - Urinary incontinence [Unknown]
  - Memory impairment [Unknown]
  - Confusional state [Unknown]
  - Disorientation [Unknown]
  - Depressed mood [Unknown]
  - Hypophagia [Unknown]
  - Gait disturbance [Unknown]
  - Hypokinesia [Unknown]
  - Fall [Unknown]
  - Asthenia [Unknown]
  - General physical condition abnormal [Unknown]
  - Hypotension [Unknown]
